FAERS Safety Report 12799940 (Version 1)
Quarter: 2016Q3

REPORT INFORMATION
  Report Type: Spontaneous
  Country: GB (occurrence: GB)
  Receive Date: 20160930
  Receipt Date: 20160930
  Transmission Date: 20161109
  Serious: Yes (Hospitalization, Other)
  Sender: FDA-Public Use
  Company Number: GB-BAYER-2016-188410

PATIENT
  Age: 43 Year
  Sex: Male

DRUGS (2)
  1. PIPERACILLIN AND TAZOBACTAM [Concomitant]
     Active Substance: PIPERACILLIN SODIUM\TAZOBACTAM SODIUM
     Indication: SEPSIS SYNDROME
     Dosage: 4?5 G EVERY 6 H
     Route: 042
     Dates: start: 200611
  2. CIPROXIN 500 MG FILM-COATED TABLETS [Suspect]
     Active Substance: CIPROFLOXACIN
     Indication: GASTROENTERITIS
     Dosage: 500 MG, BID
     Route: 048

REACTIONS (1)
  - Clostridium test positive [Recovering/Resolving]
